FAERS Safety Report 9352603 (Version 2)
Quarter: 2013Q2

REPORT INFORMATION
  Report Type: Spontaneous
  Country: US (occurrence: US)
  Receive Date: 20130618
  Receipt Date: 20130628
  Transmission Date: 20140414
  Serious: Yes (Hospitalization, Other)
  Sender: FDA-Public Use
  Company Number: US-AMGEN-USASP2013042165

PATIENT
  Age: 56 Year
  Sex: Female

DRUGS (1)
  1. ENBREL [Suspect]
     Indication: RHEUMATOID ARTHRITIS
     Dosage: 50 MG, Q2WK
     Route: 065

REACTIONS (6)
  - Abdominal pain [Recovered/Resolved]
  - White blood cell count abnormal [Recovered/Resolved]
  - Pneumonia [Unknown]
  - Pneumonia legionella [Unknown]
  - Pain [Recovered/Resolved]
  - Pyrexia [Recovered/Resolved]
